FAERS Safety Report 6415305-2 (Version None)
Quarter: 2009Q4

REPORT INFORMATION
  Report Type: 
  Country: None (occurrence: None)
  Receive Date: 20091027
  Receipt Date: 20091015
  Transmission Date: 20100525
  Serious: Yes (Other)
  Sender: FDA-Public Use
  Company Number: PHHY2009AU45274

PATIENT
  Age: 75 Year
  Sex: Male

DRUGS (1)
  1. RITALIN [Suspect]
     Indication: DEPRESSION

REACTIONS (2)
  - DISTURBANCE IN SOCIAL BEHAVIOUR [None]
  - PSYCHOTIC DISORDER [None]
